FAERS Safety Report 18507931 (Version 1)
Quarter: 2020Q4

REPORT INFORMATION
  Report Type: Spontaneous
  Country: CA (occurrence: CA)
  Receive Date: 20201116
  Receipt Date: 20201116
  Transmission Date: 20210114
  Serious: Yes (Hospitalization, Other)
  Sender: FDA-Public Use
  Company Number: CA-PFIZER INC-2020446868

PATIENT
  Age: 72 Year
  Sex: Male

DRUGS (1)
  1. ADVIL [Suspect]
     Active Substance: IBUPROFEN
     Dosage: 800 MG, 2X/DAY (800MG AM AND 800MG PM )
     Route: 065
     Dates: end: 202010

REACTIONS (3)
  - Overdose [Unknown]
  - Gastrointestinal haemorrhage [Unknown]
  - Gastrointestinal ulcer [Recovered/Resolved]

NARRATIVE: CASE EVENT DATE: 2020
